FAERS Safety Report 7658625-6 (Version None)
Quarter: 2011Q3

REPORT INFORMATION
  Report Type: 
  Country: None (occurrence: None)
  Receive Date: 20110805
  Receipt Date: 20110727
  Transmission Date: 20111222
  Serious: Yes (Hospitalization)
  Sender: FDA-Public Use
  Company Number: JP-ASTRAZENECA-2011SE45655

PATIENT
  Age: 25875 Day
  Sex: Male

DRUGS (16)
  1. CLOPIDOGREL [Suspect]
     Indication: ACUTE CORONARY SYNDROME
     Route: 048
     Dates: start: 20110407, end: 20110710
  2. ASPIRIN [Suspect]
     Indication: ACUTE CORONARY SYNDROME
     Route: 048
     Dates: start: 20110407, end: 20110407
  3. CLOPIDOGREL [Suspect]
     Route: 048
     Dates: start: 20110713, end: 20110724
  4. ASPIRIN [Suspect]
     Route: 048
     Dates: start: 20110714, end: 20110720
  5. PROTECADIN [Concomitant]
     Indication: PROPHYLAXIS AGAINST GASTROINTESTINAL ULCER
     Route: 048
     Dates: start: 20110407
  6. BASEN OD [Concomitant]
     Route: 048
     Dates: start: 20110407
  7. LIPITOR [Concomitant]
     Route: 048
     Dates: start: 20110407
  8. ZOLPIDEM [Concomitant]
     Route: 048
     Dates: start: 20110409
  9. ISOSORBIDE DINITRATE [Concomitant]
     Indication: ACUTE CORONARY SYNDROME
     Route: 002
     Dates: start: 20110608
  10. AMLODIN OD [Concomitant]
     Route: 048
     Dates: start: 20110407
  11. ASPIRIN [Suspect]
     Route: 048
     Dates: start: 20110408, end: 20110707
  12. PLACEBO [Suspect]
     Indication: ACUTE CORONARY SYNDROME
     Route: 048
     Dates: start: 20110407, end: 20110708
  13. PLACEBO [Suspect]
     Route: 048
     Dates: start: 20110714, end: 20110722
  14. BLODPRESS [Concomitant]
     Route: 048
     Dates: start: 20110407
  15. CARVEDILOL [Concomitant]
     Route: 048
     Dates: start: 20110407
  16. MYOCOR [Concomitant]
     Indication: ACUTE CORONARY SYNDROME
     Route: 055
     Dates: start: 20110411

REACTIONS (1)
  - LUNG NEOPLASM MALIGNANT [None]
